FAERS Safety Report 9847094 (Version 2)
Quarter: 2014Q1

REPORT INFORMATION
  Report Type: Spontaneous
  Country: FR (occurrence: FR)
  Receive Date: 20140127
  Receipt Date: 20140326
  Transmission Date: 20141002
  Serious: Yes (Other)
  Sender: FDA-Public Use
  Company Number: FR-ELI_LILLY_AND_COMPANY-FR201401006153

PATIENT
  Age: 65 Year
  Sex: Female
  Weight: 161 kg

DRUGS (2)
  1. OPTRUMA [Suspect]
     Indication: OSTEOPOROSIS
     Dosage: UNK UNK, QD
     Route: 065
     Dates: start: 200810
  2. OROCAL D(3) [Concomitant]
     Indication: PRODUCT USED FOR UNKNOWN INDICATION
     Dosage: UNK, UNKNOWN
     Route: 065
     Dates: start: 200810, end: 201307

REACTIONS (2)
  - Vaginal haemorrhage [Recovered/Resolved]
  - Endometrial cancer [Unknown]
